FAERS Safety Report 13631047 (Version 1)
Quarter: 2017Q2

REPORT INFORMATION
  Report Type: Spontaneous
  Country: US (occurrence: US)
  Receive Date: 20170531
  Receipt Date: 20170531
  Transmission Date: 20170830
  Serious: No
  Sender: FDA-Public Use
  Company Number: US-ASTELLAS-1348291

PATIENT
  Age: 70 Year
  Sex: Male

DRUGS (25)
  1. LANTUS [Concomitant]
     Active Substance: INSULIN GLARGINE
     Dosage: 32 UNITS
     Route: 058
  2. TARCEVA [Suspect]
     Active Substance: ERLOTINIB HYDROCHLORIDE
     Indication: LUNG NEOPLASM MALIGNANT
     Dosage: DAILY
     Route: 048
     Dates: start: 20140109, end: 20140205
  3. LANTUS [Concomitant]
     Active Substance: INSULIN GLARGINE
     Dosage: 20 UNITS AT BED TIME
     Route: 058
  4. GUAIFENESIN. [Concomitant]
     Active Substance: GUAIFENESIN
     Indication: COUGH
     Dosage: 100 MG/ 5 ML PRN
     Route: 048
  5. TRAMADOL. [Concomitant]
     Active Substance: TRAMADOL
     Dosage: AT BEDTIME
     Route: 048
  6. ALBUTEROL/IPRATROPIUM [Concomitant]
     Active Substance: ALBUTEROL\IPRATROPIUM
     Dosage: 2.5 MG-0.5 MG/3 ML
     Route: 065
  7. TARCEVA [Suspect]
     Active Substance: ERLOTINIB HYDROCHLORIDE
     Indication: LUNG NEOPLASM MALIGNANT
  8. IPRATROPIUM [Concomitant]
     Active Substance: IPRATROPIUM
  9. DEPAKOTE ER [Concomitant]
     Active Substance: DIVALPROEX SODIUM
     Route: 048
  10. DOXYCYCLINE HYCLATE. [Concomitant]
     Active Substance: DOXYCYCLINE HYCLATE
     Route: 065
  11. BENZTROPINE [Concomitant]
     Active Substance: BENZTROPINE
     Route: 048
  12. LISINOPRIL. [Concomitant]
     Active Substance: LISINOPRIL
     Route: 048
  13. RANITIDINE. [Concomitant]
     Active Substance: RANITIDINE
     Dosage: AT BEDTIME
     Route: 048
  14. DIVALPROEX SODIUM. [Concomitant]
     Active Substance: DIVALPROEX SODIUM
  15. INSULIN [Concomitant]
     Active Substance: INSULIN NOS
     Route: 065
  16. METFORMIN [Concomitant]
     Active Substance: METFORMIN HYDROCHLORIDE
     Route: 048
  17. SIMVASTATIN. [Concomitant]
     Active Substance: SIMVASTATIN
     Dosage: AT BEDTIME
     Route: 048
  18. METOPROLOL TARTRATE. [Concomitant]
     Active Substance: METOPROLOL TARTRATE
     Route: 048
  19. ALBUTEROL. [Concomitant]
     Active Substance: ALBUTEROL
     Route: 065
  20. CIMETIDINE [Concomitant]
     Active Substance: CIMETIDINE
     Route: 048
  21. HUMALOG [Concomitant]
     Active Substance: INSULIN LISPRO
     Route: 058
  22. OLANZAPINE. [Concomitant]
     Active Substance: OLANZAPINE
     Dosage: AT BEDTIME
     Route: 048
  23. TRIFLUOPERAZINE [Concomitant]
     Active Substance: TRIFLUOPERAZINE\TRIFLUOPERAZINE HYDROCHLORIDE
     Dosage: AT BEDTIME
     Route: 048
  24. METFORMIN [Concomitant]
     Active Substance: METFORMIN HYDROCHLORIDE
     Route: 048
  25. FISH OIL [Concomitant]
     Active Substance: FISH OIL
     Route: 048

REACTIONS (3)
  - Drooling [Recovered/Resolved]
  - Tremor [Recovered/Resolved]
  - Abdominal pain [Unknown]

NARRATIVE: CASE EVENT DATE: 20140205
